FAERS Safety Report 8092653-4 (Version None)
Quarter: 2012Q1

REPORT INFORMATION
  Report Type: 
  Country: None (occurrence: None)
  Receive Date: 20120131
  Receipt Date: 20120125
  Transmission Date: 20120608
  Serious: No
  Sender: FDA-Public Use
  Company Number: US-PFIZER INC-2012021931

PATIENT
  Sex: Female

DRUGS (2)
  1. LYRICA [Suspect]
     Indication: DIABETIC NEUROPATHY
     Dosage: 75 MG, 2X/DAY
     Dates: start: 20110101, end: 20110101
  2. LYRICA [Suspect]
     Dosage: 50 MG, UNK
     Dates: start: 20110101, end: 20110101

REACTIONS (2)
  - DIABETIC NEUROPATHY [None]
  - BACK PAIN [None]
